FAERS Safety Report 17106508 (Version 1)
Quarter: 2019Q4

REPORT INFORMATION
  Report Type: Report from Study
  Country: None (occurrence: FR)
  Receive Date: 20191203
  Receipt Date: 20191203
  Transmission Date: 20200122
  Serious: Yes (Life-Threatening, Hospitalization, Other)
  Sender: FDA-Public Use
  Company Number: FR-ABBVIE-19P-056-3158115-00

PATIENT
  Age: 9 Year
  Sex: Male
  Weight: 39.5 kg

DRUGS (6)
  1. MORPHINE [Concomitant]
     Active Substance: MORPHINE
     Indication: SPINAL PAIN
     Dosage: UNK UNK, BID
     Route: 048
     Dates: start: 20190805
  2. PREDNISONE. [Suspect]
     Active Substance: PREDNISONE
     Indication: CHRONIC GRAFT VERSUS HOST DISEASE
     Dosage: 20 MG, BID
     Route: 048
     Dates: start: 201907
  3. ORACILLIN                          /00001802/ [Concomitant]
     Active Substance: PENICILLIN V POTASSIUM
     Indication: INFECTION PROPHYLAXIS
  4. CICLOSPORIN A [Concomitant]
     Active Substance: CYCLOSPORINE
     Indication: CHRONIC GRAFT VERSUS HOST DISEASE
     Dosage: 60 MG, BID
     Route: 048
  5. IBRUTINIB [Suspect]
     Active Substance: IBRUTINIB
     Indication: CHRONIC GRAFT VERSUS HOST DISEASE
     Dosage: 336 MG, QD
     Route: 048
     Dates: start: 20190801, end: 20190829
  6. VALACICLOVIR [Concomitant]
     Active Substance: VALACYCLOVIR HYDROCHLORIDE
     Indication: PRODUCT USED FOR UNKNOWN INDICATION

REACTIONS (5)
  - Pneumonitis [Recovered/Resolved]
  - Epidural lipomatosis [Not Recovered/Not Resolved]
  - Peripheral nerve palsy [Recovered/Resolved]
  - Cauda equina syndrome [Not Recovered/Not Resolved]
  - Bronchopulmonary aspergillosis [Recovered/Resolved]

NARRATIVE: CASE EVENT DATE: 20190828
